FAERS Safety Report 19089643 (Version 1)
Quarter: 2021Q2

REPORT INFORMATION
  Report Type: Spontaneous
  Country: CA (occurrence: CA)
  Receive Date: 20210403
  Receipt Date: 20210403
  Transmission Date: 20210717
  Serious: Yes (Life-Threatening)
  Sender: FDA-Public Use
  Company Number: CA-ROCHE-2800437

PATIENT
  Age: 21 Year
  Sex: Male
  Weight: 52 kg

DRUGS (4)
  1. DIAZEPAM. [Suspect]
     Active Substance: DIAZEPAM
     Indication: PRODUCT USED FOR UNKNOWN INDICATION
     Route: 042
  2. TYLENOL [Concomitant]
     Active Substance: ACETAMINOPHEN
  3. ALCOHOL. [Concomitant]
     Active Substance: ALCOHOL
  4. CANNABIS [Concomitant]
     Active Substance: CANNABIS SATIVA SUBSP. INDICA TOP

REACTIONS (5)
  - Drug level increased [Unknown]
  - Hepatic function abnormal [Unknown]
  - Endotracheal intubation [Unknown]
  - Oxygen saturation decreased [Unknown]
  - Coma scale abnormal [Unknown]
